FAERS Safety Report 24461722 (Version 1)
Quarter: 2024Q4

REPORT INFORMATION
  Report Type: Report from Study
  Country: US (occurrence: US)
  Receive Date: 20241018
  Receipt Date: 20241018
  Transmission Date: 20250115
  Serious: No
  Sender: ROCHE
  Company Number: US-ROCHE-3565291

PATIENT
  Age: 36 Year
  Sex: Female
  Weight: 67.13 kg

DRUGS (11)
  1. RITUXAN [Suspect]
     Active Substance: RITUXIMAB
     Indication: Rheumatoid arthritis
     Dosage: 1000 MG IV FOR ONE DOSE?ON 16/MAY/2024 2ND INFUSION
     Route: 041
     Dates: start: 20240501
  2. RITUXAN [Suspect]
     Active Substance: RITUXIMAB
     Dosage: 1 INFUSION EVERY 6 MONTHS AFTER INITIAL COURSE
     Route: 041
     Dates: start: 2024
  3. ACTEMRA [Suspect]
     Active Substance: TOCILIZUMAB
     Indication: Rheumatoid arthritis
     Dosage: DRUG 162MG/0.9ML SYRINGE SUBCUTANEOUSLY
     Route: 058
     Dates: start: 2023, end: 2023
  4. PREDNISONE [Concomitant]
     Active Substance: PREDNISONE
     Indication: Rheumatoid arthritis
     Route: 048
     Dates: start: 2021
  5. AZATHIOPRINE [Concomitant]
     Active Substance: AZATHIOPRINE
     Indication: Rheumatoid arthritis
     Route: 048
     Dates: start: 202404
  6. FOLIC ACID [Concomitant]
     Active Substance: FOLIC ACID
     Indication: Nutritional supplementation
     Route: 048
     Dates: start: 2023
  7. NAPROXEN [Concomitant]
     Active Substance: NAPROXEN
     Indication: Pain
     Dosage: TAKEN AS NEEDED
     Route: 048
     Dates: start: 2023
  8. ONDANSETRON [Concomitant]
     Active Substance: ONDANSETRON
     Indication: Nausea
     Dosage: TAKEN AS NEEDED
     Route: 048
     Dates: start: 2024
  9. AFRIN [Concomitant]
     Active Substance: OXYMETAZOLINE
     Dosage: TAKEN AS NEEDED
     Route: 055
     Dates: start: 2024
  10. LEVOTHYROXINE [Concomitant]
     Active Substance: LEVOTHYROXINE
     Indication: Hormone replacement therapy
     Route: 048
     Dates: start: 2023
  11. LEVOTHYROXINE [Concomitant]
     Active Substance: LEVOTHYROXINE
     Route: 048
     Dates: start: 2012, end: 2023

REACTIONS (2)
  - Cough [Not Recovered/Not Resolved]
  - Off label use [Unknown]

NARRATIVE: CASE EVENT DATE: 20240101
